FAERS Safety Report 10760621 (Version 2)
Quarter: 2015Q1

REPORT INFORMATION
  Report Type: Spontaneous
  Country: US (occurrence: None)
  Receive Date: 20150202
  Receipt Date: 20150218
  Transmission Date: 20150721
  Serious: Yes (Death)
  Sender: FDA-Public Use
  Company Number: HA15-013-AE

PATIENT
  Age: 78 Year
  Weight: 67 kg

DRUGS (11)
  1. CELECOXIB\IBUPROFEN\PLACEBO [Suspect]
     Active Substance: CELECOXIB\IBUPROFEN\PLACEBO
     Indication: RHEUMATOID ARTHRITIS
  2. CONDROFLEX (CHONDROTIN, GLUCOSAMINE) [Concomitant]
  3. SIMVASTATIN. [Concomitant]
     Active Substance: SIMVASTATIN
  4. PREGABALIN. [Concomitant]
     Active Substance: PREGABALIN
  5. NAPROXEN TABLETS, USP  (UNKNOWN STRENGTH) [Suspect]
     Active Substance: NAPROXEN
     Indication: OSTEOARTHRITIS
     Dosage: HIGH DOSE /TWICE DAILY/
     Dates: start: 20121005, end: 20140402
  6. ALLOPURINOL. [Concomitant]
     Active Substance: ALLOPURINOL
  7. LEVOTHYROXINE [Concomitant]
     Active Substance: LEVOTHYROXINE
  8. NEXIUM [Concomitant]
     Active Substance: ESOMEPRAZOLE MAGNESIUM
  9. ENALAPRIL [Concomitant]
     Active Substance: ENALAPRIL
  10. SERETIDE (FLUTICASONE PROPIONATE, SALEMETROLXINAFORTE) [Concomitant]
  11. BUSCOPAN (HYOSCINE BUTYLBROMIDE) (HYOSCINE BUTYLBROMIDE) [Concomitant]
     Active Substance: BUTYLSCOPOLAMINE

REACTIONS (2)
  - Post procedural complication [None]
  - Intestinal ischaemia [None]

NARRATIVE: CASE EVENT DATE: 20141004
